FAERS Safety Report 9068294 (Version 1)
Quarter: 2013Q1

REPORT INFORMATION
  Report Type: Spontaneous
  Country: SG (occurrence: SG)
  Receive Date: 20130206
  Receipt Date: 20130206
  Transmission Date: 20140127
  Serious: Yes (Other)
  Sender: FDA-Public Use
  Company Number: SG-PFIZER INC-2013032543

PATIENT
  Age: 50 Year
  Sex: Female

DRUGS (1)
  1. LIGNOCAINE [Suspect]

REACTIONS (1)
  - Rash erythematous [Unknown]
